FAERS Safety Report 13014955 (Version 2)
Quarter: 2016Q4

REPORT INFORMATION
  Report Type: Spontaneous
  Country: SE (occurrence: SE)
  Receive Date: 20161210
  Receipt Date: 20161222
  Transmission Date: 20170207
  Serious: Yes (Disabling, Other)
  Sender: FDA-Public Use
  Company Number: SE-ASTRAZENECA-2016SF21565

PATIENT
  Age: 40 Year
  Sex: Male

DRUGS (2)
  1. SEROQUEL [Suspect]
     Active Substance: QUETIAPINE FUMARATE
     Dosage: LOWEST DOSE TWICE DAILY
     Route: 048
     Dates: start: 20060203
  2. OTHER ANTIPSYCHOTICS [Suspect]
     Active Substance: UNSPECIFIED INGREDIENT
     Route: 065

REACTIONS (8)
  - Seizure [Unknown]
  - Hypoacusis [Unknown]
  - Hypoacusis [None]
  - Depression [None]
  - Spider naevus [None]
  - Dizziness [Unknown]
  - Fatigue [None]
  - Mouth injury [Unknown]

NARRATIVE: CASE EVENT DATE: 2006
